FAERS Safety Report 6945849-6 (Version None)
Quarter: 2010Q3

REPORT INFORMATION
  Report Type: 
  Country: None (occurrence: None)
  Receive Date: 20100827
  Receipt Date: 20100812
  Transmission Date: 20110219
  Serious: Yes (Life-Threatening, Other)
  Sender: FDA-Public Use
  Company Number: PL-GENENTECH-305573

PATIENT
  Sex: Male
  Weight: 81 kg

DRUGS (8)
  1. RITUXIMAB [Suspect]
     Indication: CHRONIC LYMPHOCYTIC LEUKAEMIA
     Dosage: 950 MG, Q28D
     Route: 042
     Dates: start: 20100215
  2. FLUDARABINA [Suspect]
     Indication: CHRONIC LYMPHOCYTIC LEUKAEMIA
     Dosage: 47 MG, Q28D
     Route: 042
     Dates: start: 20100717, end: 20100719
  3. CYKLOFOSFAMID [Suspect]
     Indication: CHRONIC LYMPHOCYTIC LEUKAEMIA
     Dosage: 475 MG, Q28D
     Route: 042
     Dates: start: 20100717, end: 20100719
  4. MEROPENEM [Concomitant]
     Indication: FEBRILE NEUTROPENIA
     Dosage: 1 MG, TID
     Route: 042
     Dates: start: 20100729, end: 20100806
  5. TARGOCID [Concomitant]
     Indication: FEBRILE NEUTROPENIA
     Dosage: 200 MG, BID
     Route: 058
     Dates: start: 20100801, end: 20100806
  6. NEUPOGEN [Concomitant]
     Indication: NEUTROPENIA
     Dosage: 480 A?G, QAM
     Route: 042
     Dates: start: 20100728, end: 20100803
  7. DOPAMINA [Concomitant]
     Indication: HYPOTONIA
     Dosage: 2 ML, Q1H
     Route: 042
     Dates: start: 20100730, end: 20100803
  8. LEVONOR [Concomitant]
     Indication: HYPOTONIA
     Dosage: 10 ML, Q1H
     Route: 042
     Dates: start: 20100801, end: 20100802

REACTIONS (4)
  - ANURIA [None]
  - FEBRILE NEUTROPENIA [None]
  - HYPOTENSION [None]
  - TRANSURETHRAL PROSTATECTOMY [None]
